FAERS Safety Report 21986374 (Version 3)
Quarter: 2023Q1

REPORT INFORMATION
  Report Type: Report from Study
  Country: BR (occurrence: None)
  Receive Date: 20230213
  Receipt Date: 20230303
  Transmission Date: 20230417
  Serious: Yes (Life-Threatening, Hospitalization, Other)
  Sender: FDA-Public Use
  Company Number: 2023A035866

PATIENT
  Age: 14129 Day
  Sex: Male

DRUGS (51)
  1. DURVALUMAB [Suspect]
     Active Substance: DURVALUMAB
     Indication: Gastric cancer
     Route: 042
     Dates: start: 20220913, end: 20220913
  2. DURVALUMAB [Suspect]
     Active Substance: DURVALUMAB
     Indication: Oesophageal carcinoma
     Route: 042
     Dates: start: 20220913, end: 20220913
  3. DURVALUMAB [Suspect]
     Active Substance: DURVALUMAB
     Indication: Gastric cancer
     Route: 042
     Dates: start: 20221010, end: 20221010
  4. DURVALUMAB [Suspect]
     Active Substance: DURVALUMAB
     Indication: Oesophageal carcinoma
     Route: 042
     Dates: start: 20221010, end: 20221010
  5. DURVALUMAB [Suspect]
     Active Substance: DURVALUMAB
     Indication: Gastric cancer
     Route: 042
     Dates: start: 20230206, end: 20230206
  6. DURVALUMAB [Suspect]
     Active Substance: DURVALUMAB
     Indication: Oesophageal carcinoma
     Route: 042
     Dates: start: 20230206, end: 20230206
  7. FLUOROURACIL [Suspect]
     Active Substance: FLUOROURACIL
     Indication: Gastric cancer
     Dosage: 1500.0 MG/M2 2600 MG/M2 ON DAYS 1 AND 15 2600 MG/M2 ON DAYS 1 AND 15 EVERY FOUR WEEKS
     Route: 042
     Dates: start: 20220913, end: 20220914
  8. FLUOROURACIL [Suspect]
     Active Substance: FLUOROURACIL
     Indication: Oesophageal carcinoma
     Dosage: 1500.0 MG/M2 2600 MG/M2 ON DAYS 1 AND 15 2600 MG/M2 ON DAYS 1 AND 15 EVERY FOUR WEEKS
     Route: 042
     Dates: start: 20220913, end: 20220914
  9. FLUOROURACIL [Suspect]
     Active Substance: FLUOROURACIL
     Indication: Gastric cancer
     Dosage: 2600.0 MG/M2 2600 MG/M2 ON DAYS 1 AND 15 2600 MG/M2 ON DAYS 1 AND 15 EVERY FOUR WEEKS
     Route: 042
     Dates: start: 20220927, end: 20220928
  10. FLUOROURACIL [Suspect]
     Active Substance: FLUOROURACIL
     Indication: Oesophageal carcinoma
     Dosage: 2600.0 MG/M2 2600 MG/M2 ON DAYS 1 AND 15 2600 MG/M2 ON DAYS 1 AND 15 EVERY FOUR WEEKS
     Route: 042
     Dates: start: 20220927, end: 20220928
  11. FLUOROURACIL [Suspect]
     Active Substance: FLUOROURACIL
     Indication: Gastric cancer
     Dosage: 2600.0 MG/M2 2600 MG/M2 ON DAYS 1 AND 15 2600 MG/M2 ON DAYS 1 AND 15 EVERY FOUR WEEKS
     Route: 042
     Dates: start: 20221010, end: 20221011
  12. FLUOROURACIL [Suspect]
     Active Substance: FLUOROURACIL
     Indication: Oesophageal carcinoma
     Dosage: 2600.0 MG/M2 2600 MG/M2 ON DAYS 1 AND 15 2600 MG/M2 ON DAYS 1 AND 15 EVERY FOUR WEEKS
     Route: 042
     Dates: start: 20221010, end: 20221011
  13. FLUOROURACIL [Suspect]
     Active Substance: FLUOROURACIL
     Indication: Gastric cancer
     Dosage: 2600.0 MG/M2 2600 MG/M2 ON DAYS 1 AND 15 2600 MG/M2 ON DAYS 1 AND 15 EVERY FOUR WEEKS
     Route: 042
     Dates: start: 20221026, end: 20221027
  14. FLUOROURACIL [Suspect]
     Active Substance: FLUOROURACIL
     Indication: Oesophageal carcinoma
     Dosage: 2600.0 MG/M2 2600 MG/M2 ON DAYS 1 AND 15 2600 MG/M2 ON DAYS 1 AND 15 EVERY FOUR WEEKS
     Route: 042
     Dates: start: 20221026, end: 20221027
  15. OXALIPLATIN [Suspect]
     Active Substance: OXALIPLATIN
     Indication: Gastric cancer
     Dosage: 85.0 MG/M2 85 MG/M2 ON DAYS 1 AND 15 85 MG/M2 ON DAYS 1 AND 15 EVERY FOUR WEEKS
     Route: 042
     Dates: start: 20220913, end: 20220913
  16. OXALIPLATIN [Suspect]
     Active Substance: OXALIPLATIN
     Indication: Oesophageal carcinoma
     Dosage: 85.0 MG/M2 85 MG/M2 ON DAYS 1 AND 15 85 MG/M2 ON DAYS 1 AND 15 EVERY FOUR WEEKS
     Route: 042
     Dates: start: 20220913, end: 20220913
  17. OXALIPLATIN [Suspect]
     Active Substance: OXALIPLATIN
     Indication: Gastric cancer
     Dosage: 85.0 MG/M2 85 MG/M2 ON DAYS 1 AND 15 85 MG/M2 ON DAYS 1 AND 15 EVERY FOUR WEEKS
     Route: 042
     Dates: start: 20220927, end: 20220927
  18. OXALIPLATIN [Suspect]
     Active Substance: OXALIPLATIN
     Indication: Oesophageal carcinoma
     Dosage: 85.0 MG/M2 85 MG/M2 ON DAYS 1 AND 15 85 MG/M2 ON DAYS 1 AND 15 EVERY FOUR WEEKS
     Route: 042
     Dates: start: 20220927, end: 20220927
  19. OXALIPLATIN [Suspect]
     Active Substance: OXALIPLATIN
     Indication: Gastric cancer
     Dosage: 85.0 MG/M2 85 MG/M2 ON DAYS 1 AND 15 85 MG/M2 ON DAYS 1 AND 15 EVERY FOUR WEEKS
     Route: 042
     Dates: start: 20221010, end: 20221010
  20. OXALIPLATIN [Suspect]
     Active Substance: OXALIPLATIN
     Indication: Oesophageal carcinoma
     Dosage: 85.0 MG/M2 85 MG/M2 ON DAYS 1 AND 15 85 MG/M2 ON DAYS 1 AND 15 EVERY FOUR WEEKS
     Route: 042
     Dates: start: 20221010, end: 20221010
  21. OXALIPLATIN [Suspect]
     Active Substance: OXALIPLATIN
     Indication: Gastric cancer
     Dosage: 85.0 MG/M2 85 MG/M2 ON DAYS 1 AND 15 85 MG/M2 ON DAYS 1 AND 15 EVERY FOUR WEEKS
     Route: 042
     Dates: start: 20221026, end: 20221026
  22. OXALIPLATIN [Suspect]
     Active Substance: OXALIPLATIN
     Indication: Oesophageal carcinoma
     Dosage: 85.0 MG/M2 85 MG/M2 ON DAYS 1 AND 15 85 MG/M2 ON DAYS 1 AND 15 EVERY FOUR WEEKS
     Route: 042
     Dates: start: 20221026, end: 20221026
  23. OXALIPLATIN [Suspect]
     Active Substance: OXALIPLATIN
     Indication: Gastric cancer
     Dosage: 85.0 MG/M2 85 MG/M2 ON DAYS 1 AND 15 85 MG/M2 ON DAYS 1 AND 15 EVERY FOUR WEEKS
     Route: 042
     Dates: start: 20230206, end: 20230206
  24. OXALIPLATIN [Suspect]
     Active Substance: OXALIPLATIN
     Indication: Oesophageal carcinoma
     Dosage: 85.0 MG/M2 85 MG/M2 ON DAYS 1 AND 15 85 MG/M2 ON DAYS 1 AND 15 EVERY FOUR WEEKS
     Route: 042
     Dates: start: 20230206, end: 20230206
  25. LEUCOVORIN [Suspect]
     Active Substance: LEUCOVORIN
     Indication: Gastric cancer
     Dosage: 200.0 MG/M2 200 MG/M2 ON DAYS 1 AND 15 200 MG/M2 ON DAYS 1 AND 15 EVERY FOUR WEEKS
     Route: 042
     Dates: start: 20220913, end: 20220913
  26. LEUCOVORIN [Suspect]
     Active Substance: LEUCOVORIN
     Indication: Oesophageal carcinoma
     Dosage: 200.0 MG/M2 200 MG/M2 ON DAYS 1 AND 15 200 MG/M2 ON DAYS 1 AND 15 EVERY FOUR WEEKS
     Route: 042
     Dates: start: 20220913, end: 20220913
  27. LEUCOVORIN [Suspect]
     Active Substance: LEUCOVORIN
     Indication: Gastric cancer
     Dosage: 200.0 MG/M2 200 MG/M2 ON DAYS 1 AND 15 200 MG/M2 ON DAYS 1 AND 15 EVERY FOUR WEEKS
     Route: 042
     Dates: start: 20220927, end: 20220927
  28. LEUCOVORIN [Suspect]
     Active Substance: LEUCOVORIN
     Indication: Oesophageal carcinoma
     Dosage: 200.0 MG/M2 200 MG/M2 ON DAYS 1 AND 15 200 MG/M2 ON DAYS 1 AND 15 EVERY FOUR WEEKS
     Route: 042
     Dates: start: 20220927, end: 20220927
  29. LEUCOVORIN [Suspect]
     Active Substance: LEUCOVORIN
     Indication: Gastric cancer
     Dosage: 200.0 MG/M2 200 MG/M2 ON DAYS 1 AND 15 200 MG/M2 ON DAYS 1 AND 15 EVERY FOUR WEEKS
     Route: 042
     Dates: start: 20221010, end: 20221010
  30. LEUCOVORIN [Suspect]
     Active Substance: LEUCOVORIN
     Indication: Oesophageal carcinoma
     Dosage: 200.0 MG/M2 200 MG/M2 ON DAYS 1 AND 15 200 MG/M2 ON DAYS 1 AND 15 EVERY FOUR WEEKS
     Route: 042
     Dates: start: 20221010, end: 20221010
  31. LEUCOVORIN [Suspect]
     Active Substance: LEUCOVORIN
     Indication: Gastric cancer
     Dosage: 200.0 MG/M2 200 MG/M2 ON DAYS 1 AND 15 200 MG/M2 ON DAYS 1 AND 15 EVERY FOUR WEEKS
     Route: 042
     Dates: start: 20221026, end: 20221026
  32. LEUCOVORIN [Suspect]
     Active Substance: LEUCOVORIN
     Indication: Oesophageal carcinoma
     Dosage: 200.0 MG/M2 200 MG/M2 ON DAYS 1 AND 15 200 MG/M2 ON DAYS 1 AND 15 EVERY FOUR WEEKS
     Route: 042
     Dates: start: 20221026, end: 20221026
  33. LEUCOVORIN [Suspect]
     Active Substance: LEUCOVORIN
     Indication: Gastric cancer
     Dosage: 200.0 MG/M2 200 MG/M2 ON DAYS 1 AND 15 200 MG/M2 ON DAYS 1 AND 15 EVERY FOUR WEEKS
     Route: 042
     Dates: start: 20230206, end: 20230206
  34. LEUCOVORIN [Suspect]
     Active Substance: LEUCOVORIN
     Indication: Oesophageal carcinoma
     Dosage: 200.0 MG/M2 200 MG/M2 ON DAYS 1 AND 15 200 MG/M2 ON DAYS 1 AND 15 EVERY FOUR WEEKS
     Route: 042
     Dates: start: 20230206, end: 20230206
  35. DOCETAXEL [Suspect]
     Active Substance: DOCETAXEL
     Indication: Gastric cancer
     Dosage: 50.0 MG/M2 50 MG/M2 ON DAYS 1 AND 15 50 MG/M2 ON DAYS 1 AND 15 EVERY FOUR WEEKS
     Route: 042
     Dates: start: 20220913, end: 20220913
  36. DOCETAXEL [Suspect]
     Active Substance: DOCETAXEL
     Indication: Oesophageal carcinoma
     Dosage: 50.0 MG/M2 50 MG/M2 ON DAYS 1 AND 15 50 MG/M2 ON DAYS 1 AND 15 EVERY FOUR WEEKS
     Route: 042
     Dates: start: 20220913, end: 20220913
  37. DOCETAXEL [Suspect]
     Active Substance: DOCETAXEL
     Indication: Gastric cancer
     Dosage: 50.0 MG/M2 50 MG/M2 ON DAYS 1 AND 15 50 MG/M2 ON DAYS 1 AND 15 EVERY FOUR WEEKS
     Route: 042
     Dates: start: 20220927, end: 20220927
  38. DOCETAXEL [Suspect]
     Active Substance: DOCETAXEL
     Indication: Oesophageal carcinoma
     Dosage: 50.0 MG/M2 50 MG/M2 ON DAYS 1 AND 15 50 MG/M2 ON DAYS 1 AND 15 EVERY FOUR WEEKS
     Route: 042
     Dates: start: 20220927, end: 20220927
  39. DOCETAXEL [Suspect]
     Active Substance: DOCETAXEL
     Indication: Gastric cancer
     Dosage: 50.0 MG/M2 50 MG/M2 ON DAYS 1 AND 15 50 MG/M2 ON DAYS 1 AND 15 EVERY FOUR WEEKS
     Route: 042
     Dates: start: 20221010, end: 20221010
  40. DOCETAXEL [Suspect]
     Active Substance: DOCETAXEL
     Indication: Oesophageal carcinoma
     Dosage: 50.0 MG/M2 50 MG/M2 ON DAYS 1 AND 15 50 MG/M2 ON DAYS 1 AND 15 EVERY FOUR WEEKS
     Route: 042
     Dates: start: 20221010, end: 20221010
  41. DOCETAXEL [Suspect]
     Active Substance: DOCETAXEL
     Indication: Gastric cancer
     Dosage: 50.0 MG/M2 50 MG/M2 ON DAYS 1 AND 15 50 MG/M2 ON DAYS 1 AND 15 EVERY FOUR WEEKS
     Route: 042
     Dates: start: 20221026, end: 20221026
  42. DOCETAXEL [Suspect]
     Active Substance: DOCETAXEL
     Indication: Oesophageal carcinoma
     Dosage: 50.0 MG/M2 50 MG/M2 ON DAYS 1 AND 15 50 MG/M2 ON DAYS 1 AND 15 EVERY FOUR WEEKS
     Route: 042
     Dates: start: 20221026, end: 20221026
  43. DOCETAXEL [Suspect]
     Active Substance: DOCETAXEL
     Indication: Gastric cancer
     Dosage: 50.0 MG/M2 50 MG/M2 ON DAYS 1 AND 15 50 MG/M2 ON DAYS 1 AND 15 EVERY FOUR WEEKS
     Route: 042
     Dates: start: 20230206, end: 20230206
  44. DOCETAXEL [Suspect]
     Active Substance: DOCETAXEL
     Indication: Oesophageal carcinoma
     Dosage: 50.0 MG/M2 50 MG/M2 ON DAYS 1 AND 15 50 MG/M2 ON DAYS 1 AND 15 EVERY FOUR WEEKS
     Route: 042
     Dates: start: 20230206, end: 20230206
  45. ONDANSETRON [Concomitant]
     Active Substance: ONDANSETRON
     Indication: Chemotherapy
     Dosage: 8.0MG ONCE/SINGLE ADMINISTRATION
     Route: 042
     Dates: start: 20230206, end: 20230206
  46. ONDANSETRON [Concomitant]
     Active Substance: ONDANSETRON
     Indication: Chemotherapy side effect prophylaxis
     Dosage: 8.0MG ONCE/SINGLE ADMINISTRATION
     Route: 042
     Dates: start: 20230206, end: 20230206
  47. AKYNZEO [Concomitant]
     Indication: Chemotherapy
     Dosage: 1.0DF ONCE/SINGLE ADMINISTRATION
     Route: 048
     Dates: start: 20230206, end: 20230206
  48. DEXAMETHASONE [Concomitant]
     Active Substance: DEXAMETHASONE
     Indication: Chemotherapy
     Dosage: 10.0MG ONCE/SINGLE ADMINISTRATION
     Route: 042
     Dates: start: 20230206, end: 20230206
  49. DEXAMETHASONE [Concomitant]
     Active Substance: DEXAMETHASONE
     Indication: Chemotherapy side effect prophylaxis
     Dosage: 10.0MG ONCE/SINGLE ADMINISTRATION
     Route: 042
     Dates: start: 20230206, end: 20230206
  50. DIPHENHYDRAMINE HYDROCHLORIDE [Concomitant]
     Active Substance: DIPHENHYDRAMINE HYDROCHLORIDE
     Indication: Chemotherapy
     Dosage: 50.0MG ONCE/SINGLE ADMINISTRATION
     Route: 042
     Dates: start: 20230206, end: 20230206
  51. DIPHENHYDRAMINE HYDROCHLORIDE [Concomitant]
     Active Substance: DIPHENHYDRAMINE HYDROCHLORIDE
     Indication: Chemotherapy side effect prophylaxis
     Dosage: 50.0MG ONCE/SINGLE ADMINISTRATION
     Route: 042
     Dates: start: 20230206, end: 20230206

REACTIONS (1)
  - Colitis [Recovered/Resolved]

NARRATIVE: CASE EVENT DATE: 20230209
